FAERS Safety Report 23337231 (Version 2)
Quarter: 2025Q2

REPORT INFORMATION
  Report Type: Spontaneous
  Country: US (occurrence: US)
  Receive Date: 20231226
  Receipt Date: 20250514
  Transmission Date: 20250717
  Serious: Yes (Hospitalization, Disabling, Other)
  Sender: MACLEODS
  Company Number: None

PATIENT

DRUGS (16)
  1. ESCITALOPRAM [Suspect]
     Active Substance: ESCITALOPRAM OXALATE
     Indication: Antidepressant therapy
     Dosage: 20 MILLIGRAM, QD, 14 10 TO 15 9
     Route: 048
  2. DESVENLAFAXINE [Suspect]
     Active Substance: DESVENLAFAXINE
     Indication: Major depression
     Route: 048
  3. OLANZAPINE [Suspect]
     Active Substance: OLANZAPINE
     Indication: Antidepressant therapy
     Dosage: 20 MILLIGRAM, QD 20 MG POQHS 15 10 TO 16 2
     Route: 048
  4. OLANZAPINE [Suspect]
     Active Substance: OLANZAPINE
     Indication: Antipsychotic therapy
  5. QUETIAPINE [Suspect]
     Active Substance: QUETIAPINE
     Indication: Antidepressant therapy
     Dosage: 40 PILLS OF QUETIAPINE 50 MG, METHYLPHENIDATE 5 MG, AND BUPROPION 150 MG
     Route: 048
  6. QUETIAPINE [Suspect]
     Active Substance: QUETIAPINE
     Indication: Antipsychotic therapy
     Dosage: INCREASED TO QUETIAPINE 150 MG BID
     Route: 048
  7. QUETIAPINE [Suspect]
     Active Substance: QUETIAPINE
     Route: 048
  8. QUETIAPINE [Suspect]
     Active Substance: QUETIAPINE
     Dosage: EVERY NIGHT BEDTIME
     Route: 048
  9. QUETIAPINE [Suspect]
     Active Substance: QUETIAPINE
     Dosage: EVERY NIGHT BEDTIME
     Route: 065
  10. BUPROPION [Suspect]
     Active Substance: BUPROPION
     Indication: Antidepressant therapy
     Route: 048
  11. BUPROPION [Suspect]
     Active Substance: BUPROPION
     Indication: Antidepressant therapy
     Dosage: UNKNOWN BDF
     Route: 048
  12. BUPROPION [Suspect]
     Active Substance: BUPROPION
     Dosage: UNKNOWN BDF
     Route: 048
  13. METHYLPHENIDATE [Suspect]
     Active Substance: METHYLPHENIDATE
     Indication: Anxiolytic therapy
     Route: 048
  14. CLONAZEPAM [Concomitant]
     Active Substance: CLONAZEPAM
     Indication: Anxiety
     Dosage: 0.5 MILLIGRAM, BID
     Route: 048
  15. DULOXETINE [Concomitant]
     Active Substance: DULOXETINE
     Dosage: 60 MILLIGRAM, QD 15 9TO16 2)
     Route: 048
  16. LISINOPRIL [Concomitant]
     Active Substance: LISINOPRIL
     Indication: Product used for unknown indication
     Route: 065

REACTIONS (9)
  - Gait disturbance [Unknown]
  - Galactorrhoea [Unknown]
  - Hyperprolactinaemia [Unknown]
  - Suicide attempt [Unknown]
  - Mental impairment [Unknown]
  - Intentional overdose [Unknown]
  - Vomiting [Unknown]
  - Somnolence [Unknown]
  - Vision blurred [Unknown]
